FAERS Safety Report 24009047 (Version 1)
Quarter: 2024Q2

REPORT INFORMATION
  Report Type: Report from Study
  Country: US (occurrence: US)
  Receive Date: 20240625
  Receipt Date: 20240625
  Transmission Date: 20240716
  Serious: Yes (Other)
  Sender: FDA-Public Use
  Company Number: US-BIOGEN-2024BI01269913

PATIENT
  Age: 33 Year
  Sex: Female

DRUGS (1)
  1. ZURZUVAE [Suspect]
     Active Substance: ZURANOLONE
     Indication: Product used for unknown indication
     Route: 050

REACTIONS (7)
  - Suicidal ideation [Recovered/Resolved]
  - Vision blurred [Recovered/Resolved]
  - Weight increased [Unknown]
  - Brain fog [Unknown]
  - Drug ineffective [Unknown]
  - Feeling drunk [Unknown]
  - Fatigue [Unknown]
